FAERS Safety Report 11916546 (Version 1)
Quarter: 2016Q1

REPORT INFORMATION
  Report Type: Report from Study
  Country: GB (occurrence: GB)
  Receive Date: 20160114
  Receipt Date: 20160114
  Transmission Date: 20160526
  Serious: Yes (Death)
  Sender: FDA-Public Use
  Company Number: GB-PFIZER INC-2016005193

PATIENT
  Age: 31 Year
  Sex: Female

DRUGS (3)
  1. ETHYLPHENIDATE [Suspect]
     Active Substance: ETHYLPHENIDATE
  2. MORPHINE SULFATE. [Suspect]
     Active Substance: MORPHINE SULFATE
     Dosage: UNK
  3. DIAZEPAM. [Suspect]
     Active Substance: DIAZEPAM
     Dosage: UNK

REACTIONS (1)
  - Toxicity to various agents [Fatal]
